FAERS Safety Report 5669987-3 (Version None)
Quarter: 2008Q1

REPORT INFORMATION
  Report Type: 
  Country: None (occurrence: None)
  Receive Date: 20080317
  Receipt Date: 20080313
  Transmission Date: 20080703
  Serious: Yes (Other)
  Sender: FDA-Public Use
  Company Number: GB-BOEHRINGER INGELHEIM GMBH, GERMANY-2008-BP-03865RO

PATIENT
  Age: 26 Year
  Sex: Male

DRUGS (3)
  1. CODEINE SUL TAB [Suspect]
  2. ONDANSETRON [Suspect]
  3. AMOXICILLIN [Suspect]

REACTIONS (3)
  - ALLERGY TEST POSITIVE [None]
  - DRUG HYPERSENSITIVITY [None]
  - TOXIC SKIN ERUPTION [None]
